FAERS Safety Report 13441965 (Version 1)
Quarter: 2017Q2

REPORT INFORMATION
  Report Type: Report from Study
  Country: US (occurrence: US)
  Receive Date: 20170413
  Receipt Date: 20170413
  Transmission Date: 20170830
  Serious: Yes (Hospitalization)
  Sender: FDA-Public Use
  Company Number: US-ROCHE-1891724

PATIENT
  Age: 61 Year
  Sex: Female
  Weight: 117.13 kg

DRUGS (3)
  1. ACTEMRA [Suspect]
     Active Substance: TOCILIZUMAB
     Indication: RHEUMATOID ARTHRITIS
     Route: 058
     Dates: start: 20161229, end: 201701
  2. ACTEMRA [Suspect]
     Active Substance: TOCILIZUMAB
     Indication: RHEUMATOID FACTOR INCREASED
  3. HYDROXYCHLOROQUINE [Concomitant]
     Active Substance: HYDROXYCHLOROQUINE

REACTIONS (4)
  - Tenosynovitis [Recovered/Resolved]
  - Peripheral swelling [Recovered/Resolved]
  - Autoimmune disorder [Unknown]
  - Bursal fluid accumulation [Recovered/Resolved]

NARRATIVE: CASE EVENT DATE: 201701
